FAERS Safety Report 8757367 (Version 2)
Quarter: 2012Q4

REPORT INFORMATION
  Report Type: 
  Country: US (occurrence: US)
  Receive Date: 20120828
  Receipt Date: 20121219
  Transmission Date: 20130627
  Serious: Yes (Hospitalization)
  Sender: FDA-Public Use
  Company Number: US-BAYER-2012-087258

PATIENT
  Age: 27 Year
  Sex: Female
  Weight: 63.49 kg

DRUGS (9)
  1. YASMIN [Suspect]
     Indication: CONTRACEPTION
     Dosage: UNK
     Dates: start: 2004, end: 201207
  2. YASMIN [Suspect]
     Indication: OVARIAN CYST NOS
  3. OCELLA [Suspect]
     Indication: CONTRACEPTION
     Dosage: UNK
     Dates: start: 201204, end: 201207
  4. OCELLA [Suspect]
     Indication: OVARIAN CYST NOS
  5. ZYRTEC [Concomitant]
     Indication: MULTIPLE ALLERGIES
  6. ONE-A-DAY [Concomitant]
  7. VITAMIN C [Concomitant]
  8. VITAMIN B12 [Concomitant]
  9. PROBIOTICS [Concomitant]
     Indication: DIGESTION IMPAIRED

REACTIONS (19)
  - Gallbladder disorder [None]
  - Gallbladder non-functioning [None]
  - Gastritis [None]
  - Gastrooesophageal reflux disease [None]
  - Emotional distress [None]
  - Injury [None]
  - Pain [None]
  - Anxiety [None]
  - Psychological trauma [None]
  - Abdominal pain upper [None]
  - Dyspepsia [None]
  - Abdominal distension [None]
  - Abdominal tenderness [None]
  - Musculoskeletal chest pain [None]
  - Back pain [None]
  - Diarrhoea [None]
  - Constipation [None]
  - Fatigue [None]
  - Scar [None]
